FAERS Safety Report 8495982-5 (Version None)
Quarter: 2012Q3

REPORT INFORMATION
  Report Type: 
  Country: None (occurrence: None)
  Receive Date: 20120709
  Receipt Date: 20120628
  Transmission Date: 20120928
  Serious: Yes (Disabling, Other)
  Sender: FDA-Public Use
  Company Number: DZ-GLAXOSMITHKLINE-B0813109A

PATIENT
  Sex: Male

DRUGS (1)
  1. SORIATANE [Suspect]
     Indication: PSORIASIS
     Route: 048

REACTIONS (5)
  - MUSCULOSKELETAL STIFFNESS [None]
  - OEDEMA PERIPHERAL [None]
  - VISUAL ACUITY REDUCED [None]
  - LYMPHADENOPATHY [None]
  - ASTHENIA [None]
